FAERS Safety Report 19001109 (Version 1)
Quarter: 2021Q1

REPORT INFORMATION
  Report Type: Spontaneous
  Country: ES (occurrence: ES)
  Receive Date: 20210312
  Receipt Date: 20210312
  Transmission Date: 20210420
  Serious: Yes (Hospitalization)
  Sender: FDA-Public Use
  Company Number: ES-ACCORD-219327

PATIENT
  Age: 87 Year
  Sex: Female

DRUGS (8)
  1. TRAZODONE [Suspect]
     Active Substance: TRAZODONE HYDROCHLORIDE
     Indication: INSOMNIA
     Route: 048
     Dates: start: 20210126
  2. GABAPENTIN. [Suspect]
     Active Substance: GABAPENTIN
     Indication: PAIN
     Route: 048
     Dates: start: 20210109
  3. MORPHINE LANNACHER [Suspect]
     Active Substance: MORPHINE
     Indication: PAIN
     Dosage: MORPHINE LANNACHER 10 MG, 100 TABLETS
     Dates: start: 20191021
  4. DELTIUS [Concomitant]
     Active Substance: CHOLECALCIFEROL
     Dosage: DELTIUS 25,000 IU / 2.5 ML ORAL SOLUTION
  5. METAMIZOLE SODIUM [Concomitant]
     Active Substance: METAMIZOLE SODIUM
     Dosage: METAMIZOLE 575 MG CAPSULE
  6. RISPERIDONA TARBIS [Suspect]
     Active Substance: RISPERIDONE
     Indication: AGITATION
     Dosage: RISPERIDONE TARBIS 1 MG TABLETS EFG, 500 TABLETS
     Route: 048
     Dates: start: 20210126
  7. OMEPRAZOLE. [Concomitant]
     Active Substance: OMEPRAZOLE
     Dosage: OMEPRAZOLE 20 MG CAPSULE
  8. CLOTRIMAZOLE. [Concomitant]
     Active Substance: CLOTRIMAZOLE
     Dosage: CLOTRIMAZOLE 10 MG / G CREAM

REACTIONS (2)
  - Hypoxic-ischaemic encephalopathy [Recovering/Resolving]
  - Off label use [Unknown]

NARRATIVE: CASE EVENT DATE: 20210127
